FAERS Safety Report 17898359 (Version 1)
Quarter: 2020Q2

REPORT INFORMATION
  Report Type: Report from Study
  Country: GB (occurrence: GB)
  Receive Date: 20200615
  Receipt Date: 20200615
  Transmission Date: 20200714
  Serious: Yes (Other)
  Sender: FDA-Public Use
  Company Number: NVSC2020GB165836

PATIENT
  Sex: Female

DRUGS (1)
  1. COSENTYX [Suspect]
     Active Substance: SECUKINUMAB
     Indication: AXIAL SPONDYLOARTHRITIS
     Dosage: 300 MG, QMO
     Route: 065
     Dates: start: 20190611

REACTIONS (6)
  - Rash [Unknown]
  - Lip exfoliation [Unknown]
  - Pollakiuria [Unknown]
  - Arthralgia [Unknown]
  - COVID-19 [Unknown]
  - Dysuria [Unknown]
